FAERS Safety Report 4811769-6 (Version None)
Quarter: 2005Q4

REPORT INFORMATION
  Report Type: 
  Country: None (occurrence: None)
  Receive Date: 20051028
  Receipt Date: 20051025
  Transmission Date: 20060501
  Serious: Yes (Hospitalization)
  Sender: FDA-Public Use
  Company Number: US-BOEHRINGER INGELHEIM PHARMACEUTICALS, INC.-2005-BP-18774BP

PATIENT
  Age: 54 Year
  Sex: Female

DRUGS (13)
  1. MIRAPEX [Suspect]
     Indication: FIBROMYALGIA
     Route: 048
     Dates: start: 20050926, end: 20051011
  2. MIRAPEX [Suspect]
     Route: 048
     Dates: start: 20051012, end: 20051016
  3. NITROGLYCERIN [Concomitant]
  4. EFFEXOR [Concomitant]
  5. PREDNISONE [Concomitant]
  6. NORVASC [Concomitant]
  7. TOPAMAX [Concomitant]
  8. OXYCONTIN [Concomitant]
  9. POTASSIUM [Concomitant]
  10. ALDACTONE [Concomitant]
  11. SEROQUEL [Concomitant]
  12. PROTONIX [Concomitant]
  13. ZANAFLEX [Concomitant]

REACTIONS (6)
  - ABASIA [None]
  - CELLULITIS [None]
  - CONFUSIONAL STATE [None]
  - DIZZINESS [None]
  - DYSARTHRIA [None]
  - ERYTHEMA [None]
